FAERS Safety Report 17106283 (Version 1)
Quarter: 2019Q4

REPORT INFORMATION
  Report Type: Spontaneous
  Country: US (occurrence: US)
  Receive Date: 20191203
  Receipt Date: 20191203
  Transmission Date: 20200122
  Serious: Yes (Other)
  Sender: FDA-Public Use
  Company Number: US-IGSA-SR10009476

PATIENT
  Age: 13 Year
  Sex: Female
  Weight: 59 kg

DRUGS (1)
  1. GAMUNEX-C [Suspect]
     Active Substance: HUMAN IMMUNOGLOBULIN G
     Indication: IMMUNODEFICIENCY COMMON VARIABLE
     Dosage: 60 G, UNK
     Route: 042
     Dates: start: 20191115, end: 20191115

REACTIONS (6)
  - Hypoaesthesia oral [Recovering/Resolving]
  - Anaphylactic reaction [Recovering/Resolving]
  - Paraesthesia oral [Recovering/Resolving]
  - Dyspnoea [Recovering/Resolving]
  - Nausea [Recovering/Resolving]
  - Abdominal discomfort [Recovering/Resolving]

NARRATIVE: CASE EVENT DATE: 20191115
